FAERS Safety Report 10042815 (Version 1)
Quarter: 2014Q1

REPORT INFORMATION
  Report Type: Spontaneous
  Country: FR (occurrence: FR)
  Receive Date: 20140327
  Receipt Date: 20140327
  Transmission Date: 20141002
  Serious: Yes (Hospitalization)
  Sender: FDA-Public Use
  Company Number: PHHY2014FR035261

PATIENT
  Age: 75 Year
  Sex: Male

DRUGS (10)
  1. METFORMIN SANDOZ [Suspect]
     Route: 048
     Dates: end: 20080325
  2. TEGELINE [Suspect]
     Indication: CHEMOTHERAPY
     Dosage: 70 G, QD
     Route: 042
     Dates: start: 20080321, end: 20080321
  3. TEGELINE [Suspect]
     Dosage: 70 G, QD
     Route: 042
     Dates: start: 20080322, end: 20080322
  4. TEGELINE [Suspect]
     Dosage: 40 G, QD
     Route: 042
     Dates: start: 20080323, end: 20080323
  5. ROCEPHINE [Suspect]
     Dosage: 1 DF, BID
     Route: 030
     Dates: start: 20080321, end: 20080322
  6. ROCEPHINE [Suspect]
     Dosage: 1 DF, QD
     Route: 030
     Dates: start: 20080323, end: 20080325
  7. VFEND [Suspect]
     Dates: start: 20080321, end: 20080324
  8. ZELITREX [Suspect]
     Dosage: 1 G, QD
     Dates: end: 20080325
  9. BACTRIM FORTE [Suspect]
     Dosage: 2 DF, TIW
     Route: 048
     Dates: end: 20080325
  10. DAFLON [Concomitant]
     Dosage: 2 DF, TID
     Route: 048
     Dates: start: 20080321, end: 20080325

REACTIONS (2)
  - Renal tubular disorder [Recovering/Resolving]
  - Renal failure acute [Recovering/Resolving]
